FAERS Safety Report 6701927-8 (Version None)
Quarter: 2010Q2

REPORT INFORMATION
  Report Type: 
  Country: None (occurrence: None)
  Receive Date: 20100429
  Receipt Date: 20100421
  Transmission Date: 20101027
  Serious: Yes (Hospitalization)
  Sender: FDA-Public Use
  Company Number: PA-ROCHE-662482

PATIENT
  Sex: Female
  Weight: 64 kg

DRUGS (14)
  1. TOCILIZUMAB [Suspect]
     Indication: RHEUMATOID ARTHRITIS
     Dosage: DOSE: 200 MG/10ML. DECIDED TO TEMPORARILY INTERRUPT ON 21 NOVEMBER 2008.
     Route: 042
     Dates: start: 20060404, end: 20081121
  2. TOCILIZUMAB [Suspect]
     Dosage: TEMPORARILY INTERRUPTED. LAST DOSE PRIOR TO SAE: 14 SEPTEMBER 2009.
     Route: 042
     Dates: start: 20090105, end: 20091013
  3. TOCILIZUMAB [Suspect]
     Route: 042
     Dates: start: 20091109
  4. PLACEBO [Suspect]
     Indication: RHEUMATOID ARTHRITIS
     Dosage: THE PATIENT WAS PREVIOUSLY ENROLLED IN WA18063.
     Route: 042
  5. METHOTREXATE [Suspect]
     Indication: DRUG USE FOR UNKNOWN INDICATION
     Route: 065
     Dates: start: 20020807
  6. PREDNISONE [Suspect]
     Indication: DRUG USE FOR UNKNOWN INDICATION
     Route: 065
     Dates: start: 19800101
  7. FOLIC ACID [Concomitant]
     Dates: start: 20020807
  8. HYDROCHLOROTHIAZIDE [Concomitant]
     Dates: start: 20030101
  9. TRIAMTERENE [Concomitant]
     Dosage: DOSE: 37.5
     Dates: start: 20030101
  10. SIMVASTATIN [Concomitant]
     Dates: start: 20020101
  11. RANITIDINE [Concomitant]
     Dates: start: 20020807
  12. AMLODIPINE [Concomitant]
     Dates: start: 20071015
  13. CALCIUM [Concomitant]
     Dates: start: 20020807
  14. ATENOLOL [Concomitant]
     Dates: start: 20071112

REACTIONS (1)
  - TIBIA FRACTURE [None]
